FAERS Safety Report 7521461-5 (Version None)
Quarter: 2011Q2

REPORT INFORMATION
  Report Type: 
  Country: None (occurrence: None)
  Receive Date: 20110531
  Receipt Date: 20110513
  Transmission Date: 20111010
  Serious: Yes (Other)
  Sender: FDA-Public Use
  Company Number: JPI-P-015121

PATIENT
  Age: 58 Year
  Sex: Female

DRUGS (8)
  1. XYREM [Suspect]
     Indication: SOMNOLENCE
     Dosage: 4.5 GM (2.25 GM, 2 IN 1 D), ORAL; 9 GM (4.5 GM, 2 IN 1 D), ORAL
     Route: 048
     Dates: start: 20060701, end: 20060101
  2. XYREM [Suspect]
     Indication: CATAPLEXY
     Dosage: 4.5 GM (2.25 GM, 2 IN 1 D), ORAL; 9 GM (4.5 GM, 2 IN 1 D), ORAL
     Route: 048
     Dates: start: 20060701, end: 20060101
  3. XYREM [Suspect]
     Indication: INSOMNIA
     Dosage: 4.5 GM (2.25 GM, 2 IN 1 D), ORAL; 9 GM (4.5 GM, 2 IN 1 D), ORAL
     Route: 048
     Dates: start: 20060701, end: 20060101
  4. XYREM [Suspect]
     Indication: SOMNOLENCE
     Dosage: 4.5 GM (2.25 GM, 2 IN 1 D), ORAL; 9 GM (4.5 GM, 2 IN 1 D), ORAL
     Route: 048
     Dates: start: 20061130
  5. XYREM [Suspect]
     Indication: CATAPLEXY
     Dosage: 4.5 GM (2.25 GM, 2 IN 1 D), ORAL; 9 GM (4.5 GM, 2 IN 1 D), ORAL
     Route: 048
     Dates: start: 20061130
  6. XYREM [Suspect]
     Indication: INSOMNIA
     Dosage: 4.5 GM (2.25 GM, 2 IN 1 D), ORAL; 9 GM (4.5 GM, 2 IN 1 D), ORAL
     Route: 048
     Dates: start: 20061130
  7. UNSPECIFIED MEDICATION FOR HIGH BLOOD PRESSURE [Concomitant]
  8. MULTIPLE UNSPECIFIED MEDICATIONS [Concomitant]

REACTIONS (16)
  - DIABETES MELLITUS [None]
  - HYPOTENSION [None]
  - INFLUENZA LIKE ILLNESS [None]
  - MALAISE [None]
  - SLEEP TALKING [None]
  - FIBULA FRACTURE [None]
  - ANTIPSYCHOTIC DRUG LEVEL INCREASED [None]
  - DYSPNOEA [None]
  - BLOOD POTASSIUM DECREASED [None]
  - THERAPEUTIC RESPONSE DECREASED [None]
  - NASOPHARYNGITIS [None]
  - LOWER LIMB FRACTURE [None]
  - FALL [None]
  - PULMONARY EMBOLISM [None]
  - HEPATITIS [None]
  - BRONCHITIS [None]
